FAERS Safety Report 9201777 (Version 2)
Quarter: 2013Q2

REPORT INFORMATION
  Report Type: Other
  Country: BG (occurrence: BG)
  Receive Date: 20130401
  Receipt Date: 20130403
  Transmission Date: 20140414
  Serious: Yes (Other)
  Sender: FDA-Public Use
  Company Number: BG-US-EMD SERONO, INC.-7201710

PATIENT
  Age: 32 Year
  Sex: Female

DRUGS (1)
  1. CLOMIPHENE CITRATE [Suspect]
     Indication: OVULATION INDUCTION

REACTIONS (1)
  - Ectopic pregnancy [Unknown]
